FAERS Safety Report 15949822 (Version 1)
Quarter: 2019Q1

REPORT INFORMATION
  Report Type: Report from Study
  Country: CZ (occurrence: CZ)
  Receive Date: 20190212
  Receipt Date: 20190212
  Transmission Date: 20190417
  Serious: Yes (Other)
  Sender: FDA-Public Use
  Company Number: CZ-TEVA-2019-CZ-1008540

PATIENT
  Age: 13 Year
  Sex: Female

DRUGS (2)
  1. TRITTICO (TRAZODONE HYDROCHLORIDE) 75 MG [Concomitant]
     Dosage: .25 DOSAGE FORMS DAILY;
  2. GLATIRAMER ACETATE. [Suspect]
     Active Substance: GLATIRAMER ACETATE
     Indication: CLINICALLY ISOLATED SYNDROME
     Dosage: COPAXONE 40 MG/ML
     Route: 058
     Dates: start: 20180621, end: 20190128

REACTIONS (9)
  - Generalised erythema [Recovered/Resolved]
  - Nausea [Recovered/Resolved]
  - Adverse event [Recovered/Resolved]
  - Swelling [Recovered/Resolved]
  - Adverse event [Recovered/Resolved]
  - Erythema [Recovered/Resolved]
  - Fatigue [Recovered/Resolved]
  - Respiration abnormal [Recovered/Resolved]
  - Pyrexia [Recovered/Resolved]

NARRATIVE: CASE EVENT DATE: 20190125
